FAERS Safety Report 24353188 (Version 2)
Quarter: 2024Q4

REPORT INFORMATION
  Report Type: Spontaneous
  Country: CA (occurrence: CA)
  Receive Date: 20240923
  Receipt Date: 20241024
  Transmission Date: 20250114
  Serious: Yes (Death)
  Sender: PFIZER
  Company Number: CA-PFIZER INC-PV202300182434

PATIENT
  Age: 65 Year
  Sex: Female
  Weight: 62.1 kg

DRUGS (3)
  1. BRAFTOVI [Suspect]
     Active Substance: ENCORAFENIB
     Indication: Gastrointestinal cancer metastatic
     Dosage: 300 MG DAILY
     Route: 048
     Dates: start: 20240417
  2. BRAFTOVI [Suspect]
     Active Substance: ENCORAFENIB
     Dosage: 300 MG, DAILY
     Route: 048
  3. PANITUMUMAB [Concomitant]
     Active Substance: PANITUMUMAB
     Dosage: UNK

REACTIONS (3)
  - Neoplasm progression [Fatal]
  - Off label use [Unknown]
  - Product use issue [Unknown]

NARRATIVE: CASE EVENT DATE: 20240813
